FAERS Safety Report 8544546 (Version 5)
Quarter: 2013Q2

REPORT INFORMATION
  Report Type: Report from Study
  Country: US (occurrence: US)
  Receive Date: 20120503
  Receipt Date: 20130524
  Transmission Date: 20140414
  Serious: Yes (Death, Hospitalization)
  Sender: FDA-Public Use
  Company Number: US-ACTELION-A-NJ2012-64760

PATIENT
  Age: 70 Year
  Sex: Female

DRUGS (13)
  1. TRACLEER [Suspect]
     Indication: PULMONARY ARTERIAL HYPERTENSION
     Dosage: UNK
     Route: 048
     Dates: start: 2010, end: 20130515
  2. SILDENAFIL [Concomitant]
  3. HEPARIN [Concomitant]
  4. FLONASE [Concomitant]
  5. ADVAIR [Concomitant]
  6. CLARITIN [Concomitant]
  7. XANAX [Concomitant]
  8. BISOPROLOL [Concomitant]
  9. PRILOSEC [Concomitant]
  10. ZOCOR [Concomitant]
  11. ALDACTONE [Concomitant]
  12. OXYGEN [Concomitant]
  13. NORVASC [Concomitant]

REACTIONS (12)
  - Death [Fatal]
  - Chronic obstructive pulmonary disease [Recovering/Resolving]
  - Bronchitis [Recovering/Resolving]
  - Emphysema [Recovering/Resolving]
  - Oxygen saturation decreased [Recovering/Resolving]
  - Dyspnoea [Recovering/Resolving]
  - Cough [Recovering/Resolving]
  - Lung infection [Recovering/Resolving]
  - Renal failure acute [Recovering/Resolving]
  - Rhinitis allergic [Recovering/Resolving]
  - Nasal congestion [Recovering/Resolving]
  - Drug dose omission [Unknown]
